FAERS Safety Report 4368380-3 (Version None)
Quarter: 2004Q2

REPORT INFORMATION
  Report Type: 
  Country: None (occurrence: None)
  Receive Date: 20040602
  Receipt Date: 20040505
  Transmission Date: 20050107
  Serious: Yes (Life-Threatening, Hospitalization, Other)
  Sender: FDA-Public Use
  Company Number: US-GLAXOSMITHKLINE-A0509660A

PATIENT
  Age: 46 Year
  Sex: Female
  Weight: 68 kg

DRUGS (12)
  1. REQUIP [Suspect]
     Indication: PARKINSON'S DISEASE
     Route: 048
  2. LASIX [Concomitant]
     Route: 048
  3. KLOR-CON [Concomitant]
  4. PROTONIX [Concomitant]
  5. ULTRASE [Concomitant]
  6. SELEGILINE HCL [Concomitant]
  7. ROBINUL [Concomitant]
  8. REGLAN [Concomitant]
  9. CALCIUM [Concomitant]
  10. POTASSIUM [Concomitant]
  11. NEOMYCIN [Concomitant]
  12. CHOLESTYRAMINE [Concomitant]

REACTIONS (2)
  - JAUNDICE [None]
  - LIVER FUNCTION TEST ABNORMAL [None]
